FAERS Safety Report 5930781-7 (Version None)
Quarter: 2008Q4

REPORT INFORMATION
  Report Type: 
  Country: None (occurrence: None)
  Receive Date: 20081022
  Receipt Date: 20081007
  Transmission Date: 20090506
  Serious: Yes (Other)
  Sender: FDA-Public Use
  Company Number: 2008BI024086

PATIENT
  Age: 76 Year
  Sex: Female

DRUGS (11)
  1. ZEVALIN [Suspect]
     Indication: DISEASE PROGRESSION
     Dosage: 1125 MBQ; XI; IV
     Route: 042
     Dates: start: 20080821, end: 20080821
  2. RITUXIMAB [Concomitant]
  3. EMCONCOR [Concomitant]
  4. SIMVASTATIN [Concomitant]
  5. CYCLOPHOSPHAMIDE [Concomitant]
  6. DOXORUBICIN HCL [Concomitant]
  7. VINCRISTINE [Concomitant]
  8. VINDESINE [Concomitant]
  9. PREDNISONE TAB [Concomitant]
  10. MABTHERA [Concomitant]
  11. LEUKERAN [Concomitant]

REACTIONS (1)
  - VISION BLURRED [None]
